FAERS Safety Report 23785041 (Version 1)
Quarter: 2024Q2

REPORT INFORMATION
  Report Type: Spontaneous
  Country: RO (occurrence: RO)
  Receive Date: 20240425
  Receipt Date: 20240425
  Transmission Date: 20240716
  Serious: Yes (Other)
  Sender: FDA-Public Use
  Company Number: RO-ABBVIE-5732284

PATIENT
  Age: 62 Year
  Sex: Female

DRUGS (5)
  1. VENETOCLAX [Suspect]
     Active Substance: VENETOCLAX
     Indication: Acute myeloid leukaemia
     Route: 048
     Dates: start: 20220818, end: 20220818
  2. VENETOCLAX [Suspect]
     Active Substance: VENETOCLAX
     Indication: Acute myeloid leukaemia
     Route: 048
     Dates: start: 20220819, end: 20220819
  3. VENETOCLAX [Suspect]
     Active Substance: VENETOCLAX
     Indication: Acute myeloid leukaemia
     Dosage: DAY3:400MG
     Route: 048
     Dates: start: 20220820, end: 20220820
  4. VENETOCLAX [Suspect]
     Active Substance: VENETOCLAX
     Indication: Acute myeloid leukaemia
     Dosage: DAY4 TO DAY 28 :400MG
     Route: 048
     Dates: start: 20220821
  5. AZACITIDINE [Concomitant]
     Active Substance: AZACITIDINE
     Indication: Acute myeloid leukaemia
     Dosage: 75MG/M2 ON DAYS 1-7
     Route: 058
     Dates: start: 20220818

REACTIONS (5)
  - Minimal residual disease [Unknown]
  - Haematotoxicity [Unknown]
  - Escherichia urinary tract infection [Unknown]
  - Transplantation complication [Unknown]
  - Myelodysplastic syndrome with excess blasts [Unknown]
